FAERS Safety Report 9390987 (Version 4)
Quarter: 2014Q2

REPORT INFORMATION
  Report Type: Report from Study
  Country: JP (occurrence: JP)
  Receive Date: 20130709
  Receipt Date: 20140617
  Transmission Date: 20141212
  Serious: Yes (Life-Threatening)
  Sender: FDA-Public Use
  Company Number: JP-AMGEN-JPNCT2013047692

PATIENT
  Age: 72 Year
  Sex: Male
  Weight: 65 kg

DRUGS (12)
  1. DARBEPOETIN ALFA [Suspect]
     Indication: NEPHROGENIC ANAEMIA
     Dosage: 180 MUG, QD
     Route: 058
     Dates: start: 20101101
  2. ZYLORIC [Concomitant]
     Dosage: UNK
     Route: 048
  3. BLOPRESS [Concomitant]
     Dosage: UNK
     Route: 048
  4. CARDENALIN [Concomitant]
     Dosage: UNK
     Route: 048
  5. CONIEL [Concomitant]
     Dosage: UNK
     Route: 048
  6. KAYEXALATE [Concomitant]
     Dosage: UNK
     Route: 048
  7. ATELEC [Concomitant]
     Dosage: UNK
     Route: 048
  8. LASIX [Concomitant]
     Indication: GLOMERULONEPHRITIS CHRONIC
     Dosage: UNK
     Route: 048
  9. ARTIST [Concomitant]
     Dosage: UNK
     Route: 048
  10. KREMEZIN [Concomitant]
     Indication: GLOMERULONEPHRITIS CHRONIC
     Dosage: UNK
     Route: 048
  11. JUSO [Concomitant]
     Indication: GLOMERULONEPHRITIS CHRONIC
     Dosage: UNK
     Route: 048
  12. PREDNISONE [Concomitant]
     Dosage: 30 MG, UNK
     Dates: start: 20140331

REACTIONS (6)
  - Lung neoplasm malignant [Not Recovered/Not Resolved]
  - Gastroenteritis [Recovered/Resolved]
  - Seasonal allergy [Recovering/Resolving]
  - Vomiting [Recovering/Resolving]
  - Diarrhoea [Recovering/Resolving]
  - Hyperphosphataemia [Recovering/Resolving]
